FAERS Safety Report 5833493-3 (Version None)
Quarter: 2008Q3

REPORT INFORMATION
  Report Type: 
  Country: None (occurrence: None)
  Receive Date: 20080805
  Receipt Date: 20080730
  Transmission Date: 20090109
  Serious: Yes (Other)
  Sender: FDA-Public Use
  Company Number: US-ASTRAZENECA-2008UW14950

PATIENT
  Age: 62 Year
  Sex: Female
  Weight: 124.7 kg

DRUGS (10)
  1. CRESTOR [Suspect]
     Indication: HYPERCHOLESTEROLAEMIA
     Route: 048
     Dates: start: 20070101
  2. FUROSEMIDE [Concomitant]
  3. MECLIZINE [Concomitant]
  4. METHOCARBAMOL [Concomitant]
  5. NEXIUM [Concomitant]
     Route: 048
  6. POTASSIUM CHLORIDE [Concomitant]
  7. QUINAPRIL [Concomitant]
  8. CARVEDILOL [Concomitant]
  9. LEXAPRO [Concomitant]
  10. NORVASC [Concomitant]

REACTIONS (1)
  - VASCULAR GRAFT [None]
